FAERS Safety Report 4443433-X (Version None)
Quarter: 2004Q3

REPORT INFORMATION
  Report Type: 
  Country: None (occurrence: None)
  Receive Date: 20040901
  Receipt Date: 20040819
  Transmission Date: 20050211
  Serious: Yes (Hospitalization)
  Sender: FDA-Public Use
  Company Number: 208564

PATIENT
  Age: 60 Year
  Sex: Female

DRUGS (3)
  1. AVASTIN [Suspect]
     Indication: RENAL CELL CARCINOMA STAGE UNSPECIFIED
     Dosage: SEE IMAGE
     Route: 042
     Dates: start: 20040720
  2. ZOMETA [Concomitant]
  3. OXYCONTIN [Concomitant]

REACTIONS (4)
  - ACCELERATED HYPERTENSION [None]
  - HYPERTENSIVE ENCEPHALOPATHY [None]
  - MEDICATION ERROR [None]
  - PROTEINURIA [None]
